FAERS Safety Report 5298335-6 (Version None)
Quarter: 2007Q2

REPORT INFORMATION
  Report Type: 
  Country: None (occurrence: None)
  Receive Date: 20070409
  Receipt Date: 20070326
  Transmission Date: 20071010
  Serious: Yes (Hospitalization)
  Sender: FDA-Public Use
  Company Number: 2007-00637

PATIENT
  Age: 47 Year
  Sex: Female
  Weight: 75 kg

DRUGS (5)
  1. VELCADE [Suspect]
     Indication: MULTIPLE MYELOMA
     Dates: start: 20060502, end: 20060811
  2. DEXAMETHASONE [Suspect]
     Indication: MULTIPLE MYELOMA
     Dates: start: 20060502, end: 20061006
  3. CYCLOPHOSPHAMIDE [Suspect]
     Indication: MULTIPLE MYELOMA
     Dates: start: 20060901, end: 20061006
  4. ETOPOSIDE [Suspect]
     Indication: MULTIPLE MYELOMA
     Dates: start: 20060901, end: 20061006
  5. CISPLATIN [Suspect]
     Indication: MULTIPLE MYELOMA
     Dates: start: 20060901, end: 20061006

REACTIONS (7)
  - CATHETER RELATED INFECTION [None]
  - FEBRILE BONE MARROW APLASIA [None]
  - LUNG INFECTION [None]
  - MULTIPLE-DRUG RESISTANCE [None]
  - NEUTROPENIA [None]
  - PSEUDOMONAS INFECTION [None]
  - TRANSPLANT [None]
